FAERS Safety Report 11811294 (Version 3)
Quarter: 2016Q1

REPORT INFORMATION
  Report Type: Spontaneous
  Country: NO (occurrence: NO)
  Receive Date: 20151208
  Receipt Date: 20160122
  Transmission Date: 20160525
  Serious: Yes (Other)
  Sender: FDA-Public Use
  Company Number: NO-TEVA-613114ACC

PATIENT
  Sex: Male

DRUGS (4)
  1. SALBUTAMOL [Suspect]
     Active Substance: ALBUTEROL
     Indication: OBSTRUCTIVE AIRWAYS DISORDER
  2. SALBUTAMOL [Suspect]
     Active Substance: ALBUTEROL
     Indication: OBSTRUCTIVE AIRWAYS DISORDER
     Route: 055
  3. ERYTHROMYCIN. [Suspect]
     Active Substance: ERYTHROMYCIN
     Dosage: 1750 MILLIGRAM DAILY;
  4. METOCLOPRAMIDE. [Suspect]
     Active Substance: METOCLOPRAMIDE
     Dosage: 60 MILLIGRAM DAILY; UP TO 3 TIMES DAILY

REACTIONS (9)
  - Diarrhoea [Recovered/Resolved]
  - Tachypnoea [Unknown]
  - Dystonia [Recovered/Resolved]
  - Atypical pneumonia [Recovered/Resolved]
  - Electrocardiogram T wave inversion [Recovered/Resolved]
  - Tachycardia [Unknown]
  - Palpitations [Unknown]
  - Dyspnoea [Unknown]
  - Vomiting [Recovered/Resolved]
